FAERS Safety Report 7603509-2 (Version None)
Quarter: 2011Q3

REPORT INFORMATION
  Report Type: 
  Country: None (occurrence: None)
  Receive Date: 20110712
  Receipt Date: 20110629
  Transmission Date: 20111222
  Serious: Yes (Hospitalization)
  Sender: FDA-Public Use
  Company Number: CA-JNJFOC-20110701313

PATIENT
  Sex: Male
  Weight: 72.6 kg

DRUGS (3)
  1. PREDNISONE [Concomitant]
  2. PREVACID [Concomitant]
  3. REMICADE [Suspect]
     Indication: PRODUCT USED FOR UNKNOWN INDICATION
     Route: 042

REACTIONS (1)
  - PANCREATITIS [None]
